FAERS Safety Report 23344235 (Version 1)
Quarter: 2023Q4

REPORT INFORMATION
  Report Type: Spontaneous
  Country: AU (occurrence: AU)
  Receive Date: 20231228
  Receipt Date: 20231228
  Transmission Date: 20240110
  Serious: Yes (Hospitalization, Other)
  Sender: FDA-Public Use
  Company Number: AU-JNJFOC-20231255198

PATIENT
  Age: 35 Year
  Sex: Female

DRUGS (4)
  1. REMICADE [Suspect]
     Active Substance: INFLIXIMAB
     Indication: Product used for unknown indication
     Route: 041
     Dates: start: 202009
  2. ENTYVIO [Suspect]
     Active Substance: VEDOLIZUMAB
     Indication: Colitis
     Route: 065
     Dates: start: 202004
  3. ENTYVIO [Suspect]
     Active Substance: VEDOLIZUMAB
     Indication: Proctitis
  4. UPADACITINIB HEMIHYDRATE [Suspect]
     Active Substance: UPADACITINIB HEMIHYDRATE
     Indication: Product used for unknown indication
     Route: 065
     Dates: start: 2023

REACTIONS (14)
  - Rectal haemorrhage [Unknown]
  - Anastomotic leak [Unknown]
  - Colitis ulcerative [Unknown]
  - Ileus [Unknown]
  - Small intestinal obstruction [Unknown]
  - Cytomegalovirus infection [Unknown]
  - Vaginal abscess [Unknown]
  - Oligoarthritis [Unknown]
  - Post procedural haematoma [Unknown]
  - Pouchitis [Unknown]
  - Rectal discharge [Unknown]
  - Vaginal discharge [Unknown]
  - Infusion related reaction [Unknown]
  - Drug specific antibody present [Unknown]

NARRATIVE: CASE EVENT DATE: 20220501
